FAERS Safety Report 7466476-0 (Version None)
Quarter: 2011Q2

REPORT INFORMATION
  Report Type: 
  Country: None (occurrence: None)
  Receive Date: 20110509
  Receipt Date: 20100930
  Transmission Date: 20111010
  Serious: No
  Sender: FDA-Public Use
  Company Number: US-ALEXION-A201001006

PATIENT

DRUGS (9)
  1. SOLIRIS [Suspect]
     Dosage: 900 MG, Q2W
     Route: 042
     Dates: start: 20091014
  2. COUMADIN [Concomitant]
     Dosage: 2 MG, QD (OR AS DIRECTED)
     Dates: start: 20100804
  3. POTASSIUM CHLORIDE [Concomitant]
     Dosage: 60 MEQ, BID (3 TABS IN THE AM, 3 TABS IN THE PM)
     Route: 048
  4. FERROUS SULFATE TAB [Concomitant]
     Dosage: 325 MG, QD
     Route: 048
  5. LASIX [Concomitant]
     Indication: OEDEMA
     Dosage: 40 MG, QOD PRN
  6. ACYCLOVIR [Concomitant]
     Indication: NEUTROPENIA
     Dosage: 400 MG, BID
     Route: 048
  7. CIPRO [Concomitant]
     Indication: NEUTROPENIA
     Dosage: 500 MG, QD
     Route: 048
  8. SOLIRIS [Suspect]
     Indication: PAROXYSMAL NOCTURNAL HAEMOGLOBINURIA
     Dosage: 600 MG, QW
     Route: 042
     Dates: start: 20090916, end: 20091007
  9. DIFLUCAN [Concomitant]
     Indication: NEUTROPENIA
     Dosage: 200 MG, QD
     Route: 048

REACTIONS (12)
  - DEPRESSION [None]
  - FATIGUE [None]
  - HAEMOGLOBIN DECREASED [None]
  - DECREASED APPETITE [None]
  - ARTHRALGIA [None]
  - BACK PAIN [None]
  - CONDITION AGGRAVATED [None]
  - HAEMATOMA [None]
  - BLOOD POTASSIUM DECREASED [None]
  - FALL [None]
  - BLOOD BILIRUBIN INCREASED [None]
  - INSOMNIA [None]
